FAERS Safety Report 4368626-1 (Version None)
Quarter: 2004Q2

REPORT INFORMATION
  Report Type: 
  Country: None (occurrence: None)
  Receive Date: 20040528
  Receipt Date: 20040521
  Transmission Date: 20050107
  Serious: Yes (Death, Other)
  Sender: FDA-Public Use
  Company Number: 2003JP006295

PATIENT
  Age: 9 Year
  Sex: Male

DRUGS (3)
  1. PROGRAF [Suspect]
     Indication: BONE MARROW TRANSPLANT
     Dates: start: 20000729, end: 20000101
  2. PROGRAF [Suspect]
     Indication: BONE MARROW TRANSPLANT
     Dates: start: 20000621, end: 20000715
  3. METHYLPREDNISOLONE [Suspect]

REACTIONS (12)
  - BLOOD PRESSURE INCREASED [None]
  - BRAIN OEDEMA [None]
  - DECREASED ACTIVITY [None]
  - DISORIENTATION [None]
  - ENCEPHALOPATHY [None]
  - GRAFT VERSUS HOST DISEASE [None]
  - GRAND MAL CONVULSION [None]
  - HALLUCINATION [None]
  - HYPOREFLEXIA [None]
  - LOSS OF CONSCIOUSNESS [None]
  - SOMNOLENCE [None]
  - STATUS EPILEPTICUS [None]
